FAERS Safety Report 9238712 (Version 1)
Quarter: 2013Q1

REPORT INFORMATION
  Report Type: Spontaneous
  Country: US (occurrence: None)
  Receive Date: 20121113
  Receipt Date: 20121113
  Transmission Date: 20140127
  Serious: No
  Sender: FDA-Public Use
  Company Number: PHEH2012US016317

PATIENT
  Sex: Female

DRUGS (3)
  1. ARCAPTA [Suspect]
     Route: 055
  2. SPIRIVA [Concomitant]
  3. ADVAIR [Concomitant]

REACTIONS (1)
  - Dyspnoea [None]
